FAERS Safety Report 7126847-9 (Version None)
Quarter: 2010Q4

REPORT INFORMATION
  Report Type: 
  Country: None (occurrence: None)
  Receive Date: 20101129
  Receipt Date: 20091113
  Transmission Date: 20110411
  Serious: No
  Sender: FDA-Public Use
  Company Number: US-PFIZER INC-2009299398

PATIENT
  Age: 69 Year
  Sex: Male
  Weight: 90.7 kg

DRUGS (7)
  1. VIAGRA [Suspect]
     Dosage: 25 MG, AS NEEDED
  2. HYZAAR [Concomitant]
  3. PREVACID [Concomitant]
  4. LIPITOR [Concomitant]
  5. CARBAMAZEPINE [Concomitant]
  6. TRICOR [Concomitant]
  7. SYNTHROID [Concomitant]

REACTIONS (1)
  - DRUG INEFFECTIVE [None]
